FAERS Safety Report 8599629-9 (Version None)
Quarter: 2012Q3

REPORT INFORMATION
  Report Type: 
  Country: None (occurrence: None)
  Receive Date: 20120816
  Receipt Date: 20120810
  Transmission Date: 20120928
  Serious: Yes (Other)
  Sender: FDA-Public Use
  Company Number: US-PFIZER INC-2012196102

PATIENT
  Sex: Female

DRUGS (2)
  1. REVATIO [Suspect]
     Dosage: UNK
  2. TRACLEER [Suspect]
     Dosage: UNK

REACTIONS (3)
  - EAR DISCOMFORT [None]
  - DEAFNESS [None]
  - DRY SKIN [None]
